FAERS Safety Report 5602489-9 (Version None)
Quarter: 2008Q1

REPORT INFORMATION
  Report Type: 
  Country: None (occurrence: None)
  Receive Date: 20080125
  Receipt Date: 20080118
  Transmission Date: 20080703
  Serious: Yes (Other)
  Sender: FDA-Public Use
  Company Number: A0698000A

PATIENT
  Age: 38 Year
  Sex: Female

DRUGS (1)
  1. VALTREX [Suspect]
     Indication: HERPES ZOSTER
     Dosage: 1000MG THREE TIMES PER DAY
     Route: 048
     Dates: start: 20071129, end: 20071130

REACTIONS (4)
  - ANXIETY [None]
  - EYELID FUNCTION DISORDER [None]
  - HYPOAESTHESIA FACIAL [None]
  - ILL-DEFINED DISORDER [None]
